FAERS Safety Report 9204514 (Version 2)
Quarter: 2013Q3

REPORT INFORMATION
  Report Type: Spontaneous
  Country: JP (occurrence: JP)
  Receive Date: 20130402
  Receipt Date: 20130913
  Transmission Date: 20140515
  Serious: Yes (Life-Threatening, Hospitalization)
  Sender: FDA-Public Use
  Company Number: JP-ROCHE-1209339

PATIENT
  Age: 81 Year
  Sex: Male
  Weight: 50 kg

DRUGS (4)
  1. AVASTIN [Suspect]
     Indication: LUNG ADENOCARCINOMA RECURRENT
     Route: 041
     Dates: start: 20120228, end: 20130228
  2. CARBOPLATIN [Concomitant]
     Indication: NON-SMALL CELL LUNG CANCER RECURRENT
     Dosage: DOSAGE IS UNCERTAIN.
     Route: 041
     Dates: start: 20120228, end: 20120823
  3. ALIMTA [Concomitant]
     Indication: NON-SMALL CELL LUNG CANCER RECURRENT
     Dosage: DOSAGE IS UNCERTAIN.
     Route: 041
     Dates: start: 20120228, end: 20130228
  4. GRANISETRON [Concomitant]
     Indication: PROPHYLAXIS OF NAUSEA AND VOMITING
     Route: 041
     Dates: start: 20120228, end: 20130228

REACTIONS (1)
  - Aortic dissection [Recovering/Resolving]
